FAERS Safety Report 20059595 (Version 1)
Quarter: 2021Q4

REPORT INFORMATION
  Report Type: Spontaneous
  Country: US (occurrence: US)
  Receive Date: 20211111
  Receipt Date: 20211111
  Transmission Date: 20220303
  Serious: No
  Sender: FDA-Public Use
  Company Number: US-BAUSCH-BL-2021-036287

PATIENT
  Age: 81 Year
  Sex: Male

DRUGS (2)
  1. JUBLIA [Suspect]
     Active Substance: EFINACONAZOLE
     Indication: Onychomycosis
     Dosage: 1 APPLICATION TO THE RIGHT THUMBNAIL
     Route: 061
     Dates: start: 2020, end: 202102
  2. JUBLIA [Suspect]
     Active Substance: EFINACONAZOLE
     Indication: Product use in unapproved indication

REACTIONS (4)
  - Onychomycosis [Not Recovered/Not Resolved]
  - Disease recurrence [Not Recovered/Not Resolved]
  - Therapeutic product effective for unapproved indication [Unknown]
  - Product use in unapproved indication [Unknown]

NARRATIVE: CASE EVENT DATE: 20200101
